FAERS Safety Report 8421093-0 (Version None)
Quarter: 2012Q2

REPORT INFORMATION
  Report Type: 
  Country: None (occurrence: None)
  Receive Date: 20120604
  Receipt Date: 20120604
  Transmission Date: 20120825
  Serious: No
  Sender: FDA-Public Use
  Company Number: None

PATIENT
  Age: 83 Year
  Sex: Female

DRUGS (2)
  1. ARICEPT [Suspect]
     Indication: DEMENTIA
     Dosage: 10MG ONCE DAILY
     Dates: start: 20120317, end: 20120607
  2. NAMENDA [Suspect]
     Indication: DEMENTIA
     Dosage: 10MG TWICE DAILY
     Dates: start: 20120310, end: 20120601

REACTIONS (6)
  - EMOTIONAL DISORDER [None]
  - ABNORMAL BEHAVIOUR [None]
  - FEAR [None]
  - NO THERAPEUTIC RESPONSE [None]
  - FEELING ABNORMAL [None]
  - THINKING ABNORMAL [None]
